FAERS Safety Report 7401792-X (Version None)
Quarter: 2011Q2

REPORT INFORMATION
  Report Type: 
  Country: None (occurrence: None)
  Receive Date: 20110408
  Receipt Date: 20110404
  Transmission Date: 20111010
  Serious: Yes (Other)
  Sender: FDA-Public Use
  Company Number: US-PFIZER INC-2009285040

PATIENT
  Age: 48 Year
  Sex: Female

DRUGS (3)
  1. CYMBALTA [Concomitant]
  2. GEODON [Suspect]
     Dosage: 120 MG, 1X/DAY
     Dates: start: 20080424, end: 20100317
  3. WELLBUTRIN [Concomitant]

REACTIONS (1)
  - TARDIVE DYSKINESIA [None]
